FAERS Safety Report 8153934-9 (Version None)
Quarter: 2012Q1

REPORT INFORMATION
  Report Type: 
  Country: None (occurrence: None)
  Receive Date: 20120221
  Receipt Date: 20120221
  Transmission Date: 20120608
  Serious: Yes (Life-Threatening)
  Sender: FDA-Public Use
  Company Number: None

PATIENT
  Age: 43 Year
  Sex: Male

DRUGS (2)
  1. CAPECITABINE [Suspect]
     Indication: BILIARY CANCER METASTATIC
     Dosage: 780 MG
     Route: 048
     Dates: start: 20120119, end: 20120123
  2. GEMCITABINE [Concomitant]
     Dosage: 1500MG
     Route: 042
     Dates: start: 20120123, end: 20120123

REACTIONS (1)
  - BLOOD BILIRUBIN INCREASED [None]
